FAERS Safety Report 7754132-0 (Version None)
Quarter: 2011Q3

REPORT INFORMATION
  Report Type: 
  Country: None (occurrence: None)
  Receive Date: 20110915
  Receipt Date: 20110912
  Transmission Date: 20111222
  Serious: Yes (Life-Threatening)
  Sender: FDA-Public Use
  Company Number: JP-PFIZER INC-2011213132

PATIENT
  Age: 83 Year
  Sex: Male

DRUGS (1)
  1. SUTENT [Suspect]
     Indication: METASTATIC RENAL CELL CARCINOMA
     Dosage: 37.5 MG, 1X/DAY
     Route: 048
     Dates: start: 20110729, end: 20110810

REACTIONS (5)
  - HAEMATURIA [None]
  - THROMBOCYTOPENIA [None]
  - PROCALCITONIN INCREASED [None]
  - PROSTATIC HAEMORRHAGE [None]
  - URINARY RETENTION [None]
